FAERS Safety Report 7833600-7 (Version None)
Quarter: 2011Q4

REPORT INFORMATION
  Report Type: 
  Country: None (occurrence: None)
  Receive Date: 20111024
  Receipt Date: 20111018
  Transmission Date: 20120403
  Serious: Yes (Hospitalization)
  Sender: FDA-Public Use
  Company Number: FR-BRISTOL-MYERS SQUIBB COMPANY-16179731

PATIENT
  Age: 30 Year
  Sex: Male

DRUGS (3)
  1. ABILIFY [Suspect]
     Indication: SCHIZOPHRENIA
  2. ABILIFY [Suspect]
     Indication: DYSTHYMIC DISORDER
  3. DEPAKOTE [Concomitant]

REACTIONS (1)
  - SCHIZOPHRENIA [None]
